FAERS Safety Report 12000540 (Version 1)
Quarter: 2016Q1

REPORT INFORMATION
  Report Type: Spontaneous
  Country: US (occurrence: None)
  Receive Date: 20160203
  Receipt Date: 20160203
  Transmission Date: 20160526
  Serious: Yes (Life-Threatening)
  Sender: FDA-Public Use
  Company Number: None

PATIENT
  Age: 58 Year
  Sex: Male
  Weight: 94.8 kg

DRUGS (2)
  1. CLOPIDOGREL DR REDI LAB INDIA [Suspect]
     Active Substance: CLOPIDOGREL BISULFATE
     Indication: VASCULAR DEVICE USER
     Dosage: 75MG  ONE QD  ORAL
     Route: 048
     Dates: start: 20160114
  2. CLOPIDOGREL DR REDI LAB INDIA [Suspect]
     Active Substance: CLOPIDOGREL BISULFATE
     Indication: CORONARY ARTERY DISEASE
     Dosage: 75MG  ONE QD  ORAL
     Route: 048
     Dates: start: 20160114

REACTIONS (7)
  - Mouth ulceration [None]
  - Headache [None]
  - Tremor [None]
  - Dizziness [None]
  - Abdominal discomfort [None]
  - Hyperhidrosis [None]
  - Gastrointestinal haemorrhage [None]

NARRATIVE: CASE EVENT DATE: 20160121
